FAERS Safety Report 14608054 (Version 1)
Quarter: 2018Q1

REPORT INFORMATION
  Report Type: Spontaneous
  Country: FR (occurrence: FR)
  Receive Date: 20180307
  Receipt Date: 20180307
  Transmission Date: 20180509
  Serious: Yes (Hospitalization, Other)
  Sender: FDA-Public Use
  Company Number: FR-AUROBINDO-AUR-APL-2018-011636

PATIENT
  Age: 3 Year
  Sex: Female
  Weight: 16.8 kg

DRUGS (7)
  1. PREDNISONE. [Suspect]
     Active Substance: PREDNISONE
     Indication: ACUTE LYMPHOCYTIC LEUKAEMIA
     Dosage: 40 MG, 1X/DAY:QD
     Route: 048
     Dates: start: 20161221, end: 20161227
  2. PEGASPARGASE [Interacting]
     Active Substance: PEGASPARGASE
     Indication: ACUTE LYMPHOCYTIC LEUKAEMIA
     Dosage: 1575 IU, 1X/DAY:QD
     Route: 042
     Dates: start: 20170220, end: 20170417
  3. METHOTREXATE. [Interacting]
     Active Substance: METHOTREXATE
     Indication: ACUTE LYMPHOCYTIC LEUKAEMIA
     Dosage: 12 MG, 1X/DAY:QD
     Route: 037
     Dates: start: 20170214, end: 20170411
  4. VINCRISTINE [Interacting]
     Active Substance: VINCRISTINE
     Indication: ACUTE LYMPHOCYTIC LEUKAEMIA
     Dosage: 0.9 MG, 1X/DAY:QD
     Route: 042
     Dates: start: 20170213, end: 20170417
  5. METHOTREXATE. [Interacting]
     Active Substance: METHOTREXATE
     Dosage: 15 UNK, UNK
     Route: 048
     Dates: start: 20170220, end: 20170417
  6. MERCAPTOPURINE. [Interacting]
     Active Substance: MERCAPTOPURINE
     Indication: ACUTE LYMPHOCYTIC LEUKAEMIA
     Dosage: 30 MG, 1X/DAY:QD
     Route: 048
     Dates: start: 20170212, end: 20170430
  7. DEXAMETHASONE. [Interacting]
     Active Substance: DEXAMETHASONE
     Indication: ACUTE LYMPHOCYTIC LEUKAEMIA
     Dosage: 4 MG, 1X/DAY:QD
     Route: 048
     Dates: start: 20170213, end: 20170414

REACTIONS (2)
  - Potentiating drug interaction [Recovered/Resolved]
  - Intracardiac thrombus [Recovered/Resolved]

NARRATIVE: CASE EVENT DATE: 20170509
